FAERS Safety Report 9642817 (Version 6)
Quarter: 2014Q1

REPORT INFORMATION
  Report Type: Report from Study
  Country: US (occurrence: US)
  Receive Date: 20131024
  Receipt Date: 20140214
  Transmission Date: 20141002
  Serious: Yes (Hospitalization)
  Sender: FDA-Public Use
  Company Number: US-JNJFOC-20131010381

PATIENT
  Age: 79 Year
  Sex: Female
  Weight: 77.11 kg

DRUGS (4)
  1. REMICADE [Suspect]
     Indication: RHEUMATOID ARTHRITIS
     Route: 042
     Dates: start: 20130814
  2. REMICADE [Suspect]
     Indication: RHEUMATOID ARTHRITIS
     Route: 042
     Dates: start: 20131023
  3. REMICADE [Suspect]
     Indication: RHEUMATOID ARTHRITIS
     Route: 042
     Dates: start: 2005
  4. WATER PILL NOS [Suspect]
     Indication: HYPERTENSION
     Route: 048
     Dates: start: 201307

REACTIONS (13)
  - Arthropathy [Recovered/Resolved]
  - Urinary incontinence [Not Recovered/Not Resolved]
  - Hypertension [Unknown]
  - Abnormal loss of weight [Not Recovered/Not Resolved]
  - Fall [Recovered/Resolved]
  - Urine output increased [Not Recovered/Not Resolved]
  - Arthralgia [Not Recovered/Not Resolved]
  - Joint injury [Not Recovered/Not Resolved]
  - Rheumatoid arthritis [Unknown]
  - Spinal pain [Not Recovered/Not Resolved]
  - Dry mouth [Not Recovered/Not Resolved]
  - Body height decreased [Not Recovered/Not Resolved]
  - Musculoskeletal discomfort [Not Recovered/Not Resolved]
